FAERS Safety Report 8170957-4 (Version None)
Quarter: 2012Q1

REPORT INFORMATION
  Report Type: 
  Country: None (occurrence: None)
  Receive Date: 20120228
  Receipt Date: 20120224
  Transmission Date: 20120608
  Serious: Yes (Hospitalization)
  Sender: FDA-Public Use
  Company Number: US-GILEAD-2012-0051450

PATIENT
  Sex: Female

DRUGS (1)
  1. LETAIRIS [Suspect]
     Indication: PRODUCT USED FOR UNKNOWN INDICATION
     Dosage: 10 MG, UNK
     Route: 048
     Dates: start: 20090916

REACTIONS (8)
  - LIMB INJURY [None]
  - HYPOKALAEMIA [None]
  - DEHYDRATION [None]
  - ATRIAL FIBRILLATION [None]
  - HEART RATE INCREASED [None]
  - SYNCOPE [None]
  - HYPOTENSION [None]
  - FALL [None]
